FAERS Safety Report 6793094-X (Version None)
Quarter: 2010Q2

REPORT INFORMATION
  Report Type: 
  Country: None (occurrence: None)
  Receive Date: 20100624
  Receipt Date: 20090706
  Transmission Date: 20101027
  Serious: Yes (Other)
  Sender: FDA-Public Use
  Company Number: US-MYLANLABS-2009S1004963

PATIENT
  Age: 24 Year
  Sex: Male

DRUGS (3)
  1. CLOZAPINE [Suspect]
     Indication: SCHIZOPHRENIA
     Dates: start: 20060601, end: 20090617
  2. PROPRANOLOL [Concomitant]
  3. ZYPREXA [Concomitant]
     Dates: start: 20090617

REACTIONS (1)
  - GRANULOCYTOPENIA [None]
